FAERS Safety Report 7382469-6 (Version None)
Quarter: 2011Q1

REPORT INFORMATION
  Report Type: 
  Country: None (occurrence: None)
  Receive Date: 20110329
  Receipt Date: 20110301
  Transmission Date: 20110831
  Serious: Yes (Other)
  Sender: FDA-Public Use
  Company Number: US-BAYER-201035455NA

PATIENT
  Sex: Female
  Weight: 102.4 kg

DRUGS (5)
  1. PROVIGIL [Concomitant]
     Dosage: 200 MG, QD
     Route: 048
  2. CEFZIL [Concomitant]
     Dosage: 500 MG, BID
  3. YAZ [Suspect]
     Indication: ORAL CONTRACEPTION
     Dates: start: 20090201, end: 20090601
  4. CYMBALTA [Concomitant]
     Dosage: 60 MG, QD
     Route: 048
  5. METFORMIN HCL [Concomitant]
     Dosage: 1000 MG, BID
     Route: 048
     Dates: start: 20020701, end: 20110121

REACTIONS (4)
  - CHOLELITHIASIS [None]
  - PAIN [None]
  - GALLBLADDER DISORDER [None]
  - CHOLECYSTITIS [None]
